FAERS Safety Report 7262285-6 (Version None)
Quarter: 2011Q1

REPORT INFORMATION
  Report Type: 
  Country: None (occurrence: None)
  Receive Date: 20110130
  Receipt Date: 20101115
  Transmission Date: 20110831
  Serious: No
  Sender: FDA-Public Use
  Company Number: US-ABBOTT-10P-163-0685599-00

PATIENT
  Age: 67 Year
  Sex: Female

DRUGS (11)
  1. SANCTURA [Concomitant]
     Indication: PRODUCT USED FOR UNKNOWN INDICATION
     Dosage: AT NIGHT
  2. MUCINEX [Concomitant]
     Indication: PRODUCT USED FOR UNKNOWN INDICATION
  3. HUMIRA [Suspect]
     Indication: PSORIASIS
     Dates: start: 20100301
  4. SERTRALINE HYDROCHLORIDE [Concomitant]
     Indication: ANXIETY
  5. TRICOR [Concomitant]
     Indication: BLOOD CHOLESTEROL
  6. SIMVASTATIN [Concomitant]
     Indication: BLOOD CHOLESTEROL
  7. VERAPAMIL [Concomitant]
     Indication: BLOOD PRESSURE
     Dosage: IN THE MORNING AND AT NIGHT
  8. ADVIL [Concomitant]
     Indication: PRODUCT USED FOR UNKNOWN INDICATION
  9. AVELOX [Concomitant]
     Indication: PRODUCT USED FOR UNKNOWN INDICATION
  10. VESICARE [Concomitant]
     Indication: BLADDER DISORDER
  11. CLARITIN [Concomitant]
     Indication: PRODUCT USED FOR UNKNOWN INDICATION

REACTIONS (5)
  - INJECTION SITE HAEMORRHAGE [None]
  - INJECTION SITE PAIN [None]
  - DEVICE MALFUNCTION [None]
  - BRONCHIAL SECRETION RETENTION [None]
  - INJECTION SITE HAEMATOMA [None]
